FAERS Safety Report 21570575 (Version 5)
Quarter: 2023Q1

REPORT INFORMATION
  Report Type: Spontaneous
  Country: GB (occurrence: GB)
  Receive Date: 20221109
  Receipt Date: 20230117
  Transmission Date: 20230418
  Serious: Yes (Hospitalization, Other)
  Sender: FDA-Public Use
  Company Number: GB-MYLANLABS-2014SP001182

PATIENT
  Age: 60 Year
  Sex: Female
  Weight: 55.4 kg

DRUGS (18)
  1. PEMETREXED [Suspect]
     Active Substance: PEMETREXED
     Indication: Non-small cell lung cancer
     Dosage: 500 MILLIGRAM/SQ. METER (3 WEEKLY)
     Route: 041
     Dates: start: 20140114
  2. ALIMTA [Suspect]
     Active Substance: PEMETREXED DISODIUM
     Indication: Non-small cell lung cancer
     Dosage: 500 MG/M2, EVERY 3 WEEKS
     Route: 065
     Dates: start: 20131203, end: 20131203
  3. ALIMTA [Suspect]
     Active Substance: PEMETREXED DISODIUM
     Indication: Lung adenocarcinoma
     Dosage: 500 MG/M2, EVERY 3 WEEKS
     Route: 065
     Dates: start: 20131224, end: 20131224
  4. ALIMTA [Suspect]
     Active Substance: PEMETREXED DISODIUM
     Indication: Neoadjuvant therapy
     Dosage: 500 MG/M2, EVERY 3 WEEKS
     Route: 065
     Dates: start: 20140114, end: 20140114
  5. CISPLATIN [Suspect]
     Active Substance: CISPLATIN
     Indication: Small cell lung cancer
     Dosage: 75 MILLIGRAM/SQ. METER
     Route: 042
     Dates: start: 20131203, end: 20131203
  6. CISPLATIN [Suspect]
     Active Substance: CISPLATIN
     Indication: Non-small cell lung cancer
     Dosage: 75 MILLIGRAM/SQ. METER
     Route: 042
     Dates: start: 20131224, end: 20131224
  7. CISPLATIN [Suspect]
     Active Substance: CISPLATIN
     Indication: Neoadjuvant therapy
     Dosage: 75 MILLIGRAM/SQ. METER
     Route: 042
     Dates: start: 20140114, end: 20140114
  8. CISPLATIN [Suspect]
     Active Substance: CISPLATIN
     Indication: Lung adenocarcinoma
  9. HYDROXOCOBALAMIN [Suspect]
     Active Substance: HYDROXOCOBALAMIN
     Indication: Non-small cell lung cancer
     Dosage: UNK
     Route: 065
     Dates: start: 20131203, end: 20131203
  10. HYDROXOCOBALAMIN [Suspect]
     Active Substance: HYDROXOCOBALAMIN
     Dosage: UNK
     Route: 065
     Dates: start: 20131224
  11. HYDROXOCOBALAMIN [Suspect]
     Active Substance: HYDROXOCOBALAMIN
     Dosage: 1000 MICROGRAM
     Route: 030
     Dates: start: 20140114, end: 20140114
  12. VITAMIN B12 [Suspect]
     Active Substance: CYANOCOBALAMIN
     Indication: Non-small cell lung cancer
     Dosage: 1000 MICROGRAM, CYCLICAL
     Route: 030
     Dates: start: 20140114, end: 20140114
  13. VITAMIN B12 [Suspect]
     Active Substance: CYANOCOBALAMIN
     Indication: Small cell lung cancer
  14. APREPITANT [Concomitant]
     Active Substance: APREPITANT
     Indication: Non-small cell lung cancer
     Dosage: 125 MILLIGRAM
     Route: 048
     Dates: start: 20131203
  15. CYCLIZINE [Concomitant]
     Active Substance: CYCLIZINE
     Indication: Non-small cell lung cancer
     Dosage: 50 MILLIGRAM
     Route: 048
     Dates: start: 20131203
  16. DEXAMETHASONE [Concomitant]
     Active Substance: DEXAMETHASONE
     Indication: Non-small cell lung cancer
     Dosage: 4 MILLIGRAM, TWO TIMES A DAY
     Route: 048
     Dates: start: 20131203
  17. LEUCOVORIN [Concomitant]
     Active Substance: LEUCOVORIN
     Indication: Non-small cell lung cancer
     Dosage: 4000 MICROGRAM, ONCE A DAY (ONCE A DAY(DAILY)
     Route: 048
     Dates: start: 20131203
  18. ONDANSETRON [Concomitant]
     Active Substance: ONDANSETRON
     Indication: Non-small cell lung cancer
     Dosage: 8 MILLIGRAM
     Route: 048
     Dates: start: 20131203

REACTIONS (7)
  - Capillary leak syndrome [Recovered/Resolved]
  - Swelling face [Recovered/Resolved]
  - Chest discomfort [Recovered/Resolved]
  - Peripheral swelling [Recovered/Resolved]
  - Rash [Recovered/Resolved]
  - Nausea [Recovered/Resolved]
  - Vomiting [Recovered/Resolved]

NARRATIVE: CASE EVENT DATE: 20131203
